FAERS Safety Report 25075263 (Version 1)
Quarter: 2025Q1

REPORT INFORMATION
  Report Type: Report from Study
  Country: US (occurrence: US)
  Receive Date: 20250313
  Receipt Date: 20250313
  Transmission Date: 20250409
  Serious: Yes (Hospitalization)
  Sender: ABBVIE
  Company Number: US-ABBVIE-6168718

PATIENT
  Sex: Female

DRUGS (1)
  1. HUMIRA [Suspect]
     Active Substance: ADALIMUMAB
     Indication: Crohn^s disease
     Route: 058
     Dates: start: 20160330

REACTIONS (5)
  - Obstructive airways disorder [Recovering/Resolving]
  - Sinusitis [Recovering/Resolving]
  - Dyspnoea [Recovering/Resolving]
  - Lymphadenopathy [Recovering/Resolving]
  - Epiglottitis [Recovering/Resolving]
